FAERS Safety Report 25399833 (Version 1)
Quarter: 2025Q2

REPORT INFORMATION
  Report Type: Spontaneous
  Country: IT (occurrence: IT)
  Receive Date: 20250605
  Receipt Date: 20250605
  Transmission Date: 20250717
  Serious: Yes (Other)
  Sender: HIKMA
  Company Number: None

PATIENT
  Age: 79 Year
  Sex: Male

DRUGS (2)
  1. GEMCITABINE [Suspect]
     Active Substance: GEMCITABINE
     Indication: Bladder cancer
     Route: 042
     Dates: start: 20241016, end: 20241016
  2. CARBOPLATIN [Concomitant]
     Active Substance: CARBOPLATIN
     Indication: Bladder cancer
     Route: 042
     Dates: start: 20241009, end: 20241009

REACTIONS (2)
  - Hyperkalaemia [Recovering/Resolving]
  - Off label use [Recovering/Resolving]

NARRATIVE: CASE EVENT DATE: 20241016
